FAERS Safety Report 5841512-3 (Version None)
Quarter: 2008Q3

REPORT INFORMATION
  Report Type: 
  Country: None (occurrence: None)
  Receive Date: 20080812
  Receipt Date: 20080807
  Transmission Date: 20090109
  Serious: Yes (Hospitalization)
  Sender: FDA-Public Use
  Company Number: FR-TEVA-175586ISR

PATIENT
  Age: 20 Year
  Sex: Male

DRUGS (1)
  1. METHOTREXATE [Suspect]
     Indication: BONE SARCOMA
     Route: 042
     Dates: start: 20080612

REACTIONS (1)
  - ENCEPHALOPATHY [None]
